FAERS Safety Report 25240936 (Version 1)
Quarter: 2025Q2

REPORT INFORMATION
  Report Type: Spontaneous
  Country: US (occurrence: US)
  Receive Date: 20250425
  Receipt Date: 20250425
  Transmission Date: 20250717
  Serious: Yes (Hospitalization, Other)
  Sender: ABBVIE
  Company Number: US-ABBVIE-6242509

PATIENT
  Age: 24 Year
  Sex: Female
  Weight: 86.182 kg

DRUGS (4)
  1. SKYRIZI [Suspect]
     Active Substance: RISANKIZUMAB-RZAA
     Indication: Crohn^s disease
     Dosage: FORM STRENGTH: 360?FORM STRENGTH UNITS: MILLIGRAM
     Route: 058
     Dates: start: 20250418
  2. SKYRIZI [Suspect]
     Active Substance: RISANKIZUMAB-RZAA
     Dosage: FORM STRENGTH: 180?FORM STRENGTH UNITS: MILLIGRAM
     Route: 058
     Dates: start: 20240213, end: 20250417
  3. ZOFRAN [Concomitant]
     Active Substance: ONDANSETRON HYDROCHLORIDE
     Indication: Nausea
  4. MIRALAX [Concomitant]
     Active Substance: POLYETHYLENE GLYCOL 3350
     Indication: Irritable bowel syndrome

REACTIONS (8)
  - Subcutaneous abscess [Recovering/Resolving]
  - Intestinal obstruction [Recovering/Resolving]
  - Stenosis [Recovering/Resolving]
  - Streptococcal infection [Unknown]
  - Colitis [Recovering/Resolving]
  - Sepsis [Unknown]
  - Fistula [Recovering/Resolving]
  - Gastrointestinal inflammation [Recovering/Resolving]

NARRATIVE: CASE EVENT DATE: 20240901
